FAERS Safety Report 12161245 (Version 2)
Quarter: 2016Q1

REPORT INFORMATION
  Report Type: Spontaneous
  Country: IE (occurrence: IE)
  Receive Date: 20160308
  Receipt Date: 20160318
  Transmission Date: 20160526
  Serious: Yes (Hospitalization)
  Sender: FDA-Public Use
  Company Number: IE-BAYER-2016-038598

PATIENT
  Age: 58 Year
  Sex: Female
  Weight: 65 kg

DRUGS (1)
  1. GADOVIST [Suspect]
     Active Substance: GADOBUTROL
     Indication: IMAGING PROCEDURE
     Dosage: 6.5 ML, ONCE
     Route: 042
     Dates: start: 20160224, end: 20160224

REACTIONS (10)
  - Urticaria [Recovered/Resolved]
  - Oxygen saturation decreased [Recovered/Resolved]
  - Skin warm [Recovered/Resolved]
  - Flushing [Recovered/Resolved]
  - Hyporesponsive to stimuli [Recovered/Resolved]
  - Hypertension [Recovered/Resolved]
  - Dyspnoea [Recovered/Resolved]
  - Tachycardia [Recovered/Resolved]
  - Feeling hot [Recovered/Resolved]
  - Pruritus [Recovered/Resolved]

NARRATIVE: CASE EVENT DATE: 20160224
